FAERS Safety Report 4350560-4 (Version None)
Quarter: 2004Q2

REPORT INFORMATION
  Report Type: 
  Country: None (occurrence: None)
  Receive Date: 20040427
  Receipt Date: 20040413
  Transmission Date: 20050107
  Serious: Yes (Death, Hospitalization)
  Sender: FDA-Public Use
  Company Number: 2003-BP-04992BP

PATIENT
  Age: 33 Year
  Sex: Female
  Weight: 101.1 kg

DRUGS (4)
  1. VIRAMUNE [Suspect]
     Indication: HIV INFECTION
     Dosage: 400 MG (200 MG, 2 IN 1 D), PO
     Route: 048
     Dates: start: 20030618, end: 20030723
  2. COMBIVIR [Suspect]
     Indication: HIV INFECTION
     Dates: start: 20030618, end: 20030723
  3. IRON [Concomitant]
  4. PRENATAL VITAMINS [Concomitant]

REACTIONS (19)
  - BLOOD PRESSURE DIASTOLIC DECREASED [None]
  - FATIGUE [None]
  - HEART RATE INCREASED [None]
  - HEPATIC FAILURE [None]
  - HEPATIC NECROSIS [None]
  - HEPATITIS [None]
  - HEPATOTOXICITY [None]
  - LYMPHOCYTIC INFILTRATION [None]
  - MULTI-ORGAN FAILURE [None]
  - NAUSEA [None]
  - OCULAR ICTERUS [None]
  - PREMATURE SEPARATION OF PLACENTA [None]
  - RASH MACULO-PAPULAR [None]
  - RASH PRURITIC [None]
  - RESPIRATORY RATE INCREASED [None]
  - SKIN DISCOLOURATION [None]
  - SOMNOLENCE [None]
  - THIRST [None]
  - VOMITING IN PREGNANCY [None]
